FAERS Safety Report 4658768-5 (Version None)
Quarter: 2005Q2

REPORT INFORMATION
  Report Type: 
  Country: None (occurrence: None)
  Receive Date: 20050509
  Receipt Date: 20050429
  Transmission Date: 20051028
  Serious: Yes (Hospitalization)
  Sender: FDA-Public Use
  Company Number: 2005-04-2298

PATIENT
  Sex: Female

DRUGS (3)
  1. BETAMETHASONE SODIUM PHOSPHATE [Suspect]
     Indication: NEUROMUSCULAR BLOCKADE
  2. SODIUM CHLORIDE INJECTABLE [Suspect]
     Indication: NEUROMUSCULAR BLOCKADE
     Dosage: 0.9%
  3. LIDOCAINE [Suspect]
     Indication: NEUROMUSCULAR BLOCKADE
     Dosage: 2%

REACTIONS (9)
  - ASTHENIA [None]
  - DRUG HYPERSENSITIVITY [None]
  - DRUG TOXICITY [None]
  - ENCEPHALITIS [None]
  - LYMPHOSTASIS [None]
  - POISONING [None]
  - PURULENCE [None]
  - PYREXIA [None]
  - SEPSIS [None]
